FAERS Safety Report 9328262 (Version 5)
Quarter: 2013Q2

REPORT INFORMATION
  Report Type: Spontaneous
  Country: JP (occurrence: JP)
  Receive Date: 20130604
  Receipt Date: 20130626
  Transmission Date: 20140414
  Serious: Yes (Other)
  Sender: FDA-Public Use
  Company Number: JP-BRISTOL-MYERS SQUIBB COMPANY-18937722

PATIENT
  Age: 40 Year
  Sex: Male
  Weight: 47.2 kg

DRUGS (2)
  1. ORENCIA FOR INJ 250 MG/VIAL [Suspect]
     Indication: RHEUMATOID ARTHRITIS
     Route: 041
     Dates: start: 20130306
  2. METHOTREXATE [Concomitant]

REACTIONS (1)
  - Interstitial lung disease [Recovering/Resolving]
